FAERS Safety Report 10308917 (Version 1)
Quarter: 2014Q3

REPORT INFORMATION
  Report Type: Spontaneous
  Country: US (occurrence: US)
  Receive Date: 20140716
  Receipt Date: 20140716
  Transmission Date: 20150326
  Serious: No
  Sender: FDA-Public Use
  Company Number: US-VERTEX PHARMACEUTICALS INC-2014-003075

PATIENT
  Age: 23 Year
  Sex: Female
  Weight: 59.86 kg

DRUGS (2)
  1. KALYDECO [Suspect]
     Active Substance: IVACAFTOR
     Indication: CYSTIC FIBROSIS
     Dosage: 1 DF, BID
     Route: 065
  2. NEBULIZER MEDICATIONS [Concomitant]
     Route: 055

REACTIONS (1)
  - Ovarian cyst ruptured [Recovering/Resolving]

NARRATIVE: CASE EVENT DATE: 20140708
